FAERS Safety Report 24025399 (Version 1)
Quarter: 2024Q2

REPORT INFORMATION
  Report Type: Spontaneous
  Country: US (occurrence: US)
  Receive Date: 20240628
  Receipt Date: 20240628
  Transmission Date: 20240716
  Serious: No
  Sender: FDA-Public Use
  Company Number: US-AUROBINDO-AUR-APL-2024-017045

PATIENT
  Age: 56 Year
  Sex: Male
  Weight: 76.2 kg

DRUGS (2)
  1. AZELASTINE HYDROCHLORIDE [Suspect]
     Active Substance: AZELASTINE HYDROCHLORIDE
     Indication: Lung disorder
     Dosage: UNK, TWO TIMES A DAY (02TIMES A DAY 02 IN THE MORNING AND 02 IN THE EVENING)
     Route: 045
     Dates: start: 20240401
  2. AZELASTINE HYDROCHLORIDE [Suspect]
     Active Substance: AZELASTINE HYDROCHLORIDE
     Indication: Sinus disorder

REACTIONS (2)
  - Product dose omission issue [Unknown]
  - Product use issue [Unknown]
